FAERS Safety Report 8043570-7 (Version None)
Quarter: 2012Q1

REPORT INFORMATION
  Report Type: 
  Country: None (occurrence: None)
  Receive Date: 20120112
  Receipt Date: 20120104
  Transmission Date: 20120608
  Serious: Yes (Hospitalization)
  Sender: FDA-Public Use
  Company Number: US-MILLENNIUM PHARMACEUTICALS, INC.-2011-06158

PATIENT
  Sex: Male

DRUGS (3)
  1. VELCADE [Suspect]
     Indication: MULTIPLE MYELOMA
     Dosage: 2.5 MG, UNK
     Route: 042
     Dates: start: 20110916, end: 20111107
  2. DOXORUBICIN HCL [Suspect]
     Indication: MULTIPLE MYELOMA
  3. DEXAMETHASONE TAB [Suspect]
     Indication: MULTIPLE MYELOMA

REACTIONS (3)
  - SKIN ULCER [None]
  - PNEUMONIA [None]
  - ANGIOPATHY [None]
